FAERS Safety Report 7249303-6 (Version None)
Quarter: 2011Q1

REPORT INFORMATION
  Report Type: 
  Country: None (occurrence: None)
  Receive Date: 20110128
  Receipt Date: 20101213
  Transmission Date: 20110831
  Serious: Yes (Hospitalization)
  Sender: FDA-Public Use
  Company Number: FR-BAYER-2010-004703

PATIENT
  Sex: Male

DRUGS (10)
  1. FUROSEMIDE [Concomitant]
     Dosage: UNK
  2. ACETAMINOPHEN [Concomitant]
     Dosage: UNK
  3. NEXIUM [Concomitant]
     Dosage: UNK
     Dates: start: 20100601
  4. RAMIPRIL [Concomitant]
     Dosage: UNK
  5. DIFFU K [Concomitant]
     Dosage: UNK
  6. CARDENSIEL [Concomitant]
     Dosage: UNK
  7. CIPROFLOXACIN [Suspect]
     Indication: URINARY TRACT INFECTION
     Dosage: UNK
     Route: 048
     Dates: start: 20100908, end: 20100917
  8. PROSCAR [Concomitant]
     Dosage: UNK
  9. PAROXETINE HCL [Concomitant]
     Dosage: UNK
     Dates: start: 20100501
  10. UVEDOSE [Concomitant]
     Indication: VITAMIN D DEFICIENCY

REACTIONS (8)
  - ACUTE GENERALISED EXANTHEMATOUS PUSTULOSIS [None]
  - RASH PRURITIC [None]
  - CHOLESTASIS [None]
  - CACHEXIA [None]
  - GENERAL PHYSICAL HEALTH DETERIORATION [None]
  - INFLAMMATION [None]
  - PYREXIA [None]
  - RENAL FAILURE [None]
